FAERS Safety Report 25426456 (Version 1)
Quarter: 2025Q2

REPORT INFORMATION
  Report Type: Report from Study
  Country: US (occurrence: US)
  Receive Date: 20250612
  Receipt Date: 20250612
  Transmission Date: 20250716
  Serious: Yes (Hospitalization, Other)
  Sender: SANDOZ
  Company Number: US-002147023-NVSC2021US071045

PATIENT
  Age: 71 Year
  Sex: Female

DRUGS (4)
  1. OMNITROPE [Suspect]
     Active Substance: SOMATROPIN
     Dosage: 5 MG, QD
     Route: 065
     Dates: start: 20250610
  2. OMNITROPE [Suspect]
     Active Substance: SOMATROPIN
     Dosage: 5 MG, QD
     Route: 065
     Dates: start: 20250610
  3. OMNITROPE [Suspect]
     Active Substance: SOMATROPIN
     Indication: Product used for unknown indication
     Route: 065
  4. OMNITROPE [Suspect]
     Active Substance: SOMATROPIN
     Indication: Product used for unknown indication
     Route: 065

REACTIONS (11)
  - Dizziness [Unknown]
  - Thoracic vertebral fracture [Unknown]
  - Fall [Unknown]
  - Head injury [Unknown]
  - Somnambulism [Unknown]
  - Weight decreased [Recovered/Resolved]
  - Intervertebral disc protrusion [Unknown]
  - Stress fracture [Unknown]
  - Haemangioma [Unknown]
  - Weight increased [Unknown]
  - Device breakage [Unknown]

NARRATIVE: CASE EVENT DATE: 20250610
